FAERS Safety Report 4365133-7 (Version None)
Quarter: 2004Q2

REPORT INFORMATION
  Report Type: 
  Country: None (occurrence: None)
  Receive Date: 20040521
  Receipt Date: 20040511
  Transmission Date: 20050107
  Serious: Yes (Hospitalization, Other)
  Sender: FDA-Public Use
  Company Number: K200400705

PATIENT
  Age: 68 Year
  Sex: Male

DRUGS (13)
  1. ALTACE [Suspect]
     Indication: HYPERTENSION
     Dosage: 5 MG, QD, ORAL
     Route: 048
     Dates: end: 20031201
  2. ALTACE [Suspect]
     Indication: HYPERTENSION
     Dosage: 5 MG, QD, ORAL
     Route: 048
     Dates: start: 20040105
  3. LANTUS [Suspect]
     Indication: DIABETES MELLITUS
     Dosage: SEE IMAGE
     Route: 058
     Dates: start: 20031201, end: 20031201
  4. LANTUS [Suspect]
     Indication: DIABETES MELLITUS
     Dosage: SEE IMAGE
     Route: 058
     Dates: start: 20031201
  5. ACTRAPID HUMAN (INSULIN HUMAN) 38IU [Suspect]
     Indication: DIABETES MELLITUS
     Dosage: 38 IU, QD, SUBCUTANEOUS
     Route: 058
     Dates: start: 20031201, end: 20031201
  6. ACTRAPID HUMAN (INSULIN HUMAN) 38IU [Suspect]
     Indication: DIABETES MELLITUS
     Dosage: 38 IU, QD, SUBCUTANEOUS
     Route: 058
     Dates: start: 20031201
  7. AQUAPHOR     (XIPAMIDE) [Concomitant]
  8. ACETYLSALICYLIC ACID (ACETYLSALICYLIC ACID) TABLET [Concomitant]
  9. BRONCHORETARD TABLET [Concomitant]
  10. DIGITOXIN (DIGITOXIN) TABLET [Concomitant]
  11. DILZEM - SLOW RELEASE (DILTIAZEM HYDROCHLORIDE) TABLET [Concomitant]
  12. SORTIS (ATORVASTATIN CALCIUM) [Concomitant]
  13. VIANI (SALMETEROL XINAFOATE, FLUTICASONE PROPIONATE) AEROSOL (SPRAY AN [Concomitant]

REACTIONS (4)
  - BLOOD PRESSURE DIASTOLIC DECREASED [None]
  - DIARRHOEA [None]
  - HYPOGLYCAEMIA [None]
  - LOSS OF CONSCIOUSNESS [None]
